FAERS Safety Report 12549027 (Version 2)
Quarter: 2016Q3

REPORT INFORMATION
  Report Type: Spontaneous
  Country: CH (occurrence: CH)
  Receive Date: 20160712
  Receipt Date: 20160801
  Transmission Date: 20161109
  Serious: Yes (Hospitalization)
  Sender: FDA-Public Use
  Company Number: CH-PFIZER INC-2016338750

PATIENT
  Age: 65 Year
  Sex: Male

DRUGS (8)
  1. ATORVASTATIN [Concomitant]
     Active Substance: ATORVASTATIN
     Dosage: UNK
  2. ZYLORIC [Concomitant]
     Active Substance: ALLOPURINOL
     Dosage: UNK
  3. PANTOPRAZOLE [Suspect]
     Active Substance: PANTOPRAZOLE SODIUM
     Indication: PROPHYLAXIS
     Dosage: 40 MG, QD
     Route: 048
     Dates: start: 20150901, end: 20151019
  4. TORASEMID [Suspect]
     Active Substance: TORSEMIDE
     Indication: CHRONIC KIDNEY DISEASE
     Dosage: 50 MG, QD
     Dates: start: 20151001, end: 20151020
  5. NEPHROTRANS [Suspect]
     Active Substance: SODIUM BICARBONATE
     Indication: CHRONIC KIDNEY DISEASE
     Dosage: 500 MG, TID
     Route: 048
     Dates: start: 2015, end: 20151020
  6. VITAMIN D3 [Concomitant]
     Active Substance: CHOLECALCIFEROL
     Dosage: UNK
  7. AMLODIPIN /00972401/ [Concomitant]
     Active Substance: AMLODIPINE BESYLATE
     Dosage: UNK
  8. QUETIAPIN [Concomitant]
     Active Substance: QUETIAPINE
     Dosage: UNK

REACTIONS (2)
  - Hypocalcaemia [Recovered/Resolved]
  - Hypomagnesaemia [Recovered/Resolved]

NARRATIVE: CASE EVENT DATE: 20151019
